FAERS Safety Report 8223891-5 (Version None)
Quarter: 2012Q1

REPORT INFORMATION
  Report Type: 
  Country: None (occurrence: None)
  Receive Date: 20120321
  Receipt Date: 20120316
  Transmission Date: 20120608
  Serious: Yes (Other)
  Sender: FDA-Public Use
  Company Number: IT-PFIZER INC-2012070861

PATIENT
  Age: 71 Year
  Sex: Female

DRUGS (1)
  1. CELEBREX [Suspect]
     Indication: OSTEOARTHRITIS
     Dosage: 200 MG TOTAL
     Route: 048
     Dates: start: 20120125, end: 20120125

REACTIONS (4)
  - TONGUE OEDEMA [None]
  - THROAT TIGHTNESS [None]
  - LIP OEDEMA [None]
  - ERYTHEMA [None]
